FAERS Safety Report 5401331-9 (Version None)
Quarter: 2007Q3

REPORT INFORMATION
  Report Type: 
  Country: None (occurrence: None)
  Receive Date: 20070726
  Receipt Date: 20070713
  Transmission Date: 20080115
  Serious: Yes (Hospitalization)
  Sender: FDA-Public Use
  Company Number: 2007BI014820

PATIENT
  Age: 64 Year
  Sex: Female
  Weight: 60 kg

DRUGS (1)
  1. AVONEX [Suspect]
     Indication: MULTIPLE SCLEROSIS
     Dosage: 30 UG;QW;IM
     Route: 030
     Dates: start: 20040901

REACTIONS (6)
  - ASTHENIA [None]
  - COUGH [None]
  - LOBAR PNEUMONIA [None]
  - MULTIPLE SCLEROSIS RELAPSE [None]
  - PAIN [None]
  - VISUAL DISTURBANCE [None]
